FAERS Safety Report 8570841-8 (Version None)
Quarter: 2012Q3

REPORT INFORMATION
  Report Type: 
  Country: None (occurrence: None)
  Receive Date: 20120806
  Receipt Date: 20120725
  Transmission Date: 20120928
  Serious: Yes (Other)
  Sender: FDA-Public Use
  Company Number: US-BIOGENIDEC-2012BI004330

PATIENT
  Age: 48 Year
  Sex: Female

DRUGS (11)
  1. ACIDOPHILUS [Concomitant]
  2. VALTREX [Concomitant]
     Route: 048
  3. CYMBALTA [Concomitant]
     Route: 048
  4. WELLBUTRIN [Concomitant]
     Route: 048
  5. CALCIUM WITH VITAMIN D [Concomitant]
     Route: 048
  6. FOSAMAX [Concomitant]
  7. TYSABRI [Suspect]
     Indication: MULTIPLE SCLEROSIS
     Route: 042
     Dates: start: 20090811, end: 20111227
  8. MULTI-VITAMIN [Concomitant]
  9. CALCIUM WITH VITAMIN D [Concomitant]
     Route: 048
  10. LOVAZA [Concomitant]
  11. BACLOFEN [Concomitant]
     Route: 048

REACTIONS (1)
  - BREAST CANCER IN SITU [None]
